FAERS Safety Report 23392929 (Version 2)
Quarter: 2024Q1

REPORT INFORMATION
  Report Type: Spontaneous
  Country: US (occurrence: US)
  Receive Date: 20240111
  Receipt Date: 20240111
  Transmission Date: 20240410
  Serious: No
  Sender: FDA-Public Use
  Company Number: US-NOVOPROD-1068825

PATIENT
  Age: 46 Year

DRUGS (3)
  1. RYBELSUS [Suspect]
     Active Substance: SEMAGLUTIDE
     Indication: Product used for unknown indication
     Dosage: UNK
     Route: 048
  2. RYBELSUS [Suspect]
     Active Substance: SEMAGLUTIDE
     Indication: Product used for unknown indication
     Dosage: 14 MG
     Route: 048
     Dates: start: 20230411
  3. RYBELSUS [Suspect]
     Active Substance: SEMAGLUTIDE
     Dosage: 7 MG
     Route: 048

REACTIONS (4)
  - Agitation [Recovered/Resolved]
  - Irritability [Recovered/Resolved]
  - Aggression [Unknown]
  - Binge eating [Unknown]

NARRATIVE: CASE EVENT DATE: 20230504
